FAERS Safety Report 15625416 (Version 1)
Quarter: 2018Q4

REPORT INFORMATION
  Report Type: Spontaneous
  Country: US (occurrence: US)
  Receive Date: 20181116
  Receipt Date: 20181116
  Transmission Date: 20190205
  Serious: No
  Sender: FDA-Public Use
  Company Number: US-PHARMING-PHAUS2018000753

PATIENT

DRUGS (13)
  1. RUCONEST [Suspect]
     Active Substance: HUMAN C1-ESTERASE INHIBITOR
     Indication: HEREDITARY ANGIOEDEMA
     Dosage: 4200 IU, AS NEEDED
     Route: 042
     Dates: start: 20180112
  2. SODIUM CHLORIDE. [Concomitant]
     Active Substance: SODIUM CHLORIDE
  3. FIRAZYR [Concomitant]
     Active Substance: ICATIBANT ACETATE
  4. PREVACID [Concomitant]
     Active Substance: LANSOPRAZOLE
  5. ZOFRAN [Concomitant]
     Active Substance: ONDANSETRON HYDROCHLORIDE
  6. PROMETHAZINE [Concomitant]
     Active Substance: PROMETHAZINE\PROMETHAZINE HYDROCHLORIDE
  7. CLARINEX [Concomitant]
     Active Substance: DESLORATADINE
  8. STERILE WATER [Concomitant]
     Active Substance: WATER
  9. KETOTIFEN FUMARATE. [Concomitant]
     Active Substance: KETOTIFEN FUMARATE
  10. ATIVAN [Concomitant]
     Active Substance: LORAZEPAM
  11. MULTIVITAMIN [Concomitant]
     Active Substance: VITAMINS
  12. EPINEPHRINE. [Concomitant]
     Active Substance: EPINEPHRINE
  13. HAEGARDA [Concomitant]
     Active Substance: HUMAN C1-ESTERASE INHIBITOR

REACTIONS (1)
  - Sinusitis [Unknown]

NARRATIVE: CASE EVENT DATE: 2018
